FAERS Safety Report 25688040 (Version 1)
Quarter: 2025Q3

REPORT INFORMATION
  Report Type: Report from Study
  Country: US (occurrence: US)
  Receive Date: 20250817
  Receipt Date: 20250817
  Transmission Date: 20251020
  Serious: Yes (Other)
  Sender: ABBVIE
  Company Number: US-ABBVIE-6414654

PATIENT
  Sex: Female

DRUGS (1)
  1. RINVOQ [Suspect]
     Active Substance: UPADACITINIB
     Indication: Rheumatoid arthritis
     Route: 048
     Dates: start: 20230904

REACTIONS (8)
  - Visual impairment [Unknown]
  - Back pain [Unknown]
  - Electric shock sensation [Unknown]
  - Chest pain [Unknown]
  - Panic attack [Unknown]
  - Myalgia [Unknown]
  - Stress [Unknown]
  - Somnolence [Unknown]
